FAERS Safety Report 9154253 (Version 3)
Quarter: 2013Q2

REPORT INFORMATION
  Report Type: Spontaneous
  Country: PT (occurrence: PT)
  Receive Date: 20130311
  Receipt Date: 20130409
  Transmission Date: 20140414
  Serious: Yes (Death)
  Sender: FDA-Public Use
  Company Number: PT-ASTELLAS-2013US002581

PATIENT
  Sex: Female
  Weight: 85 kg

DRUGS (1)
  1. AMBISOME [Suspect]
     Indication: ASPERGILLUS INFECTION
     Dosage: 250 MG, UNKNOWN/D
     Route: 042
     Dates: start: 20130217, end: 20130222

REACTIONS (1)
  - Septic shock [Fatal]
